FAERS Safety Report 19484252 (Version 1)
Quarter: 2021Q3

REPORT INFORMATION
  Report Type: Spontaneous
  Country: US (occurrence: US)
  Receive Date: 20210702
  Receipt Date: 20210702
  Transmission Date: 20211014
  Serious: No
  Sender: FDA-Public Use
  Company Number: US-SA-2021SA215883

PATIENT
  Age: 77 Year
  Sex: Female

DRUGS (2)
  1. DUPIXENT [Suspect]
     Active Substance: DUPILUMAB
     Indication: NASAL POLYPS
     Dosage: 300 MG, QOW
     Dates: start: 20210507, end: 20210619
  2. IBUPROFEN. [Concomitant]
     Active Substance: IBUPROFEN
     Indication: DISCOMFORT

REACTIONS (8)
  - Asthma [Unknown]
  - Feeling abnormal [Unknown]
  - Fatigue [Unknown]
  - Ear pain [Unknown]
  - Cough [Unknown]
  - Oropharyngeal pain [Unknown]
  - Discomfort [Unknown]
  - Arthralgia [Unknown]
